FAERS Safety Report 7652483-1 (Version None)
Quarter: 2011Q3

REPORT INFORMATION
  Report Type: 
  Country: None (occurrence: None)
  Receive Date: 20110722
  Receipt Date: 20101222
  Transmission Date: 20111222
  Serious: Yes (Hospitalization)
  Sender: FDA-Public Use
  Company Number: UTC-003654

PATIENT
  Age: 66 Year
  Sex: Female
  Weight: 61.8 kg

DRUGS (7)
  1. REVATIO [Concomitant]
  2. DIURETICS (DIURETICS) [Concomitant]
  3. DIGOXIN [Concomitant]
  4. REMODULIN [Suspect]
     Indication: PULMONARY ARTERIAL HYPERTENSION
     Dosage: 57.6 UG/KG (0.04 UG/KG, 1 IN 1 MIN), INTRAVENOUS
     Route: 042
     Dates: start: 20071001
  5. OXYGEN (OXYGEN) [Concomitant]
  6. COUMADIN [Concomitant]
  7. TRACLEER [Concomitant]

REACTIONS (1)
  - SEPSIS [None]
